FAERS Safety Report 15563415 (Version 3)
Quarter: 2018Q4

REPORT INFORMATION
  Report Type: Report from Study
  Country: US (occurrence: US)
  Receive Date: 20181029
  Receipt Date: 20181221
  Transmission Date: 20190205
  Serious: Yes (Hospitalization)
  Sender: FDA-Public Use
  Company Number: US-ACTELION-A-US2018-180656

PATIENT
  Age: 66 Year
  Sex: Female
  Weight: 74.83 kg

DRUGS (9)
  1. UPTRAVI [Suspect]
     Active Substance: SELEXIPAG
     Indication: PULMONARY ARTERIAL HYPERTENSION
     Dosage: 600 MCG, BID
     Route: 048
     Dates: start: 20180314, end: 201810
  2. LETAIRIS [Concomitant]
     Active Substance: AMBRISENTAN
  3. ADCIRCA [Concomitant]
     Active Substance: TADALAFIL
  4. DILTIAZEM. [Concomitant]
     Active Substance: DILTIAZEM
  5. ARCAPTA NEOHALER [Concomitant]
     Active Substance: INDACATEROL MALEATE
  6. ADVAIR HFA [Concomitant]
     Active Substance: FLUTICASONE PROPIONATE\SALMETEROL XINAFOATE
  7. DIGITEK [Suspect]
     Active Substance: DIGOXIN
     Indication: PRODUCT USED FOR UNKNOWN INDICATION
     Route: 065
  8. ALBUTEROL. [Concomitant]
     Active Substance: ALBUTEROL
  9. UPTRAVI [Suspect]
     Active Substance: SELEXIPAG
     Dosage: 200 MCG, UNK
     Route: 048

REACTIONS (6)
  - Pulmonary function test abnormal [Unknown]
  - Adverse event [Unknown]
  - Cardiac dysfunction [Unknown]
  - Renal impairment [Unknown]
  - Fatigue [Unknown]
  - Dyspnoea [Unknown]
